FAERS Safety Report 15922775 (Version 2)
Quarter: 2019Q1

REPORT INFORMATION
  Report Type: Spontaneous
  Country: US (occurrence: US)
  Receive Date: 20190206
  Receipt Date: 20190321
  Transmission Date: 20190417
  Serious: No
  Sender: FDA-Public Use
  Company Number: US-ASTRAZENECA-2019SE18609

PATIENT
  Age: 779 Month
  Sex: Female
  Weight: 86.2 kg

DRUGS (5)
  1. ALAVERT ALLERGY [Concomitant]
     Active Substance: LORATADINE
     Indication: HYPERSENSITIVITY
     Dosage: 10.0MG AS REQUIRED
     Route: 048
  2. BYDUREON BCISE [Suspect]
     Active Substance: EXENATIDE
     Indication: TYPE 2 DIABETES MELLITUS
     Route: 058
     Dates: start: 20190104
  3. METFORMIN [Concomitant]
     Active Substance: METFORMIN HYDROCHLORIDE
     Indication: TYPE 2 DIABETES MELLITUS
     Route: 048
  4. GLIMEPIRIDE. [Concomitant]
     Active Substance: GLIMEPIRIDE
     Indication: TYPE 2 DIABETES MELLITUS
     Dosage: INCREASED TO 2 TABLETS TWO TIMES A DAY
     Route: 048
  5. GLIMEPIRIDE. [Concomitant]
     Active Substance: GLIMEPIRIDE
     Indication: TYPE 2 DIABETES MELLITUS
     Route: 048

REACTIONS (11)
  - Injection site pain [Recovering/Resolving]
  - Injection site extravasation [Not Recovered/Not Resolved]
  - Tongue dry [Not Recovered/Not Resolved]
  - Hunger [Not Recovered/Not Resolved]
  - Device use issue [Not Recovered/Not Resolved]
  - Pruritus generalised [Recovered/Resolved]
  - Wrong technique in product usage process [Unknown]
  - Abdominal pain upper [Recovered/Resolved]
  - Device leakage [Unknown]
  - Blood glucose increased [Not Recovered/Not Resolved]
  - Incorrect dose administered [Not Recovered/Not Resolved]

NARRATIVE: CASE EVENT DATE: 201901
